FAERS Safety Report 21386545 (Version 2)
Quarter: 2023Q2

REPORT INFORMATION
  Report Type: Spontaneous
  Country: GB (occurrence: GB)
  Receive Date: 20220928
  Receipt Date: 20230414
  Transmission Date: 20230721
  Serious: Yes (Hospitalization, Other)
  Sender: FDA-Public Use
  Company Number: GB-Hikma Pharmaceuticals USA Inc.-GB-H14001-22-02295

PATIENT
  Age: 70 Year
  Sex: Female

DRUGS (4)
  1. CARBOPLATIN [Suspect]
     Active Substance: CARBOPLATIN
     Indication: Anal cancer
     Dosage: AUC 5;
     Route: 042
     Dates: start: 20220304
  2. PACLITAXEL [Suspect]
     Active Substance: PACLITAXEL
     Indication: Anal cancer
     Route: 042
     Dates: start: 20220304
  3. PLACEBO [Suspect]
     Active Substance: UNSPECIFIED INGREDIENT
     Indication: Anal cancer
     Dosage: THERAPY END DATE : NOT ASKED, UNIT DOSE : 500 MG
     Route: 042
     Dates: start: 20220304
  4. PLACEBO [Suspect]
     Active Substance: UNSPECIFIED INGREDIENT
     Route: 042
     Dates: start: 20220902

REACTIONS (9)
  - Pyrexia [Recovered/Resolved]
  - Gastrointestinal stoma output abnormal [Unknown]
  - Neutropenic sepsis [Recovered/Resolved]
  - Abdominal distension [Unknown]
  - Cough [Unknown]
  - Fatigue [Unknown]
  - White blood cell count decreased [Unknown]
  - Lower respiratory tract infection [Unknown]
  - Neutrophil count decreased [Unknown]

NARRATIVE: CASE EVENT DATE: 20220812
